FAERS Safety Report 24678344 (Version 1)
Quarter: 2024Q4

REPORT INFORMATION
  Report Type: Spontaneous
  Country: US (occurrence: US)
  Receive Date: 20241129
  Receipt Date: 20241129
  Transmission Date: 20250115
  Serious: No
  Sender: TAKEDA
  Company Number: US-TAKEDA-2024TUS117620

PATIENT
  Sex: Male
  Weight: 79 kg

DRUGS (4)
  1. ADDERALL XR [Suspect]
     Active Substance: AMPHETAMINE ASPARTATE\AMPHETAMINE SULFATE\DEXTROAMPHETAMINE SACCHARATE\DEXTROAMPHETAMINE SULFATE
     Indication: Attention deficit hyperactivity disorder
     Dosage: 30 MILLIGRAM, BID
  2. VYVANSE [Suspect]
     Active Substance: LISDEXAMFETAMINE DIMESYLATE
     Indication: Attention deficit hyperactivity disorder
     Dosage: 70 MILLIGRAM
  3. VYVANSE [Suspect]
     Active Substance: LISDEXAMFETAMINE DIMESYLATE
     Dosage: 40 MILLIGRAM
  4. VYVANSE [Suspect]
     Active Substance: LISDEXAMFETAMINE DIMESYLATE
     Dosage: 30 MILLIGRAM

REACTIONS (6)
  - Distractibility [Unknown]
  - Underdose [Unknown]
  - Drug effect less than expected [Unknown]
  - Disturbance in attention [Unknown]
  - Drug intolerance [Unknown]
  - Irritability [Unknown]
